FAERS Safety Report 9591660 (Version 1)
Quarter: 2013Q4

REPORT INFORMATION
  Report Type: Spontaneous
  Country: US (occurrence: US)
  Receive Date: 20131003
  Receipt Date: 20131003
  Transmission Date: 20140711
  Serious: No
  Sender: FDA-Public Use
  Company Number: US-AMGEN-USASP2012081913

PATIENT
  Sex: Male
  Weight: 104 kg

DRUGS (2)
  1. ENBREL [Suspect]
     Indication: PRODUCT USED FOR UNKNOWN INDICATION
     Dosage: 50 MG, QWK
  2. LISINOPRIL [Concomitant]
     Dosage: 20 MG, UNK

REACTIONS (2)
  - Psoriasis [Unknown]
  - Nasopharyngitis [Unknown]
